FAERS Safety Report 6200898-0 (Version None)
Quarter: 2009Q2

REPORT INFORMATION
  Report Type: 
  Country: None (occurrence: None)
  Receive Date: 20090523
  Receipt Date: 20081029
  Transmission Date: 20091009
  Serious: No
  Sender: FDA-Public Use
  Company Number: US-ALEXION-A200800318

PATIENT
  Sex: Female

DRUGS (10)
  1. SOLIRIS [Suspect]
     Indication: PAROXYSMAL NOCTURNAL HAEMOGLOBINURIA
     Dosage: 900 MG, Q2W
     Route: 042
  2. PREDNISONE [Concomitant]
     Dosage: 10 MG, QOD
     Route: 048
  3. FOLIC ACID [Concomitant]
     Dosage: 3 TABS, QD
     Route: 048
  4. OMEPRAZOLE [Concomitant]
     Dosage: UNK, BID
     Route: 048
  5. CALCIUM [Concomitant]
     Dosage: UNK, QD
     Route: 048
  6. VITAMINS /90003601/ [Concomitant]
     Indication: VITAMIN SUPPLEMENTATION
     Dosage: UNK, QD
     Route: 048
  7. GLUCOSAMINE [Concomitant]
     Dosage: UNK, QD
     Route: 048
  8. CHONDROITIN [Concomitant]
     Dosage: UNK, QD
     Route: 048
  9. TYLENOL (CAPLET) [Concomitant]
     Dosage: UNK, QD
     Route: 048
  10. BENADRYL [Concomitant]
     Dosage: UNK, PRN
     Route: 048

REACTIONS (3)
  - BLOOD LACTATE DEHYDROGENASE INCREASED [None]
  - HAEMOGLOBIN DECREASED [None]
  - RETICULOCYTE COUNT INCREASED [None]
